FAERS Safety Report 5313093-4 (Version None)
Quarter: 2007Q1

REPORT INFORMATION
  Report Type: 
  Country: None (occurrence: None)
  Receive Date: 20070201
  Receipt Date: 20061120
  Transmission Date: 20070707
  Serious: No
  Sender: FDA-Public Use
  Company Number: VNL_0301_2006

PATIENT
  Age: 52 Year
  Sex: Male
  Weight: 81.6475 kg

DRUGS (4)
  1. APOKYN [Suspect]
     Indication: PARKINSON'S DISEASE
     Dosage: 0.4 ML 2X/DAY SC
     Route: 058
     Dates: start: 20061114
  2. TIGAN [Concomitant]
  3. CARBIDOPA AND LEVODOPA [Concomitant]
  4. TRAZODONE HCL [Concomitant]

REACTIONS (7)
  - CONDITION AGGRAVATED [None]
  - DYSGEUSIA [None]
  - EAR INFECTION [None]
  - INSOMNIA [None]
  - MUSCLE SPASMS [None]
  - NAUSEA [None]
  - SOMNOLENCE [None]
